FAERS Safety Report 15964300 (Version 2)
Quarter: 2019Q3

REPORT INFORMATION
  Report Type: Spontaneous
  Country: CA (occurrence: CA)
  Receive Date: 20190215
  Receipt Date: 20190808
  Transmission Date: 20191004
  Serious: Yes (Other)
  Sender: FDA-Public Use
  Company Number: CA-SUN PHARMACEUTICAL INDUSTRIES LTD-2019R1-198873

PATIENT
  Age: 37 Year
  Sex: Female

DRUGS (2)
  1. METRONIDAZOLE. [Concomitant]
     Active Substance: METRONIDAZOLE
     Indication: PERIORAL DERMATITIS
     Route: 061
  2. MINOCYCLINE [Suspect]
     Active Substance: MINOCYCLINE HYDROCHLORIDE
     Indication: PERIORAL DERMATITIS
     Dosage: UNK
     Route: 065

REACTIONS (1)
  - Depersonalisation/derealisation disorder [Recovered/Resolved]
